FAERS Safety Report 22355658 (Version 2)
Quarter: 2023Q4

REPORT INFORMATION
  Report Type: Report from Study
  Country: US (occurrence: US)
  Receive Date: 20230523
  Receipt Date: 20231025
  Transmission Date: 20240110
  Serious: No
  Sender: FDA-Public Use
  Company Number: US-IDORSIA-005219-2023-US

PATIENT
  Age: 50 Year
  Sex: Male

DRUGS (1)
  1. QUVIVIQ [Suspect]
     Active Substance: DARIDOREXANT
     Indication: Insomnia
     Dosage: 25 MG, QD
     Route: 048
     Dates: start: 20230517

REACTIONS (5)
  - Thinking abnormal [Unknown]
  - Nervousness [Unknown]
  - Fear [Unknown]
  - Hallucination [Unknown]
  - Sleep paralysis [Unknown]

NARRATIVE: CASE EVENT DATE: 20230517
